FAERS Safety Report 17460822 (Version 1)
Quarter: 2020Q1

REPORT INFORMATION
  Report Type: Spontaneous
  Country: US (occurrence: US)
  Receive Date: 20200226
  Receipt Date: 20200226
  Transmission Date: 20200409
  Serious: Yes (Other)
  Sender: FDA-Public Use
  Company Number: US-BAYER-2020-030736

PATIENT
  Age: 58 Year
  Sex: Female

DRUGS (1)
  1. CLIMARA PRO [Suspect]
     Active Substance: ESTRADIOL\LEVONORGESTREL
     Indication: MENOPAUSE
     Dosage: UNK
     Dates: start: 2018

REACTIONS (4)
  - Product adhesion issue [None]
  - Postmenopausal haemorrhage [None]
  - Wrong technique in product usage process [None]
  - Patient dissatisfaction with treatment [None]

NARRATIVE: CASE EVENT DATE: 201912
